FAERS Safety Report 9092602 (Version 1)
Quarter: 2013Q1

REPORT INFORMATION
  Report Type: Spontaneous
  Country: US (occurrence: US)
  Receive Date: 20130131
  Receipt Date: 20130131
  Transmission Date: 20140127
  Serious: No
  Sender: FDA-Public Use
  Company Number: US-009507513-1210USA012216

PATIENT
  Age: 22 Year
  Sex: Female
  Weight: 55.33 kg

DRUGS (2)
  1. SAPHRIS [Suspect]
     Indication: BIPOLAR DISORDER
     Dosage: 5 MG, HS
     Route: 048
  2. SAPHRIS [Suspect]
     Dosage: 5 MG, UNK
     Route: 048
     Dates: end: 20120925

REACTIONS (1)
  - Amenorrhoea [Recovered/Resolved]
